FAERS Safety Report 4996331-7 (Version None)
Quarter: 2006Q2

REPORT INFORMATION
  Report Type: 
  Country: None (occurrence: None)
  Receive Date: 20060505
  Receipt Date: 20060427
  Transmission Date: 20061013
  Serious: Yes (Life-Threatening, Hospitalization)
  Sender: FDA-Public Use
  Company Number: 224527

PATIENT
  Age: 78 Year
  Sex: Female

DRUGS (2)
  1. ACTIVASE [Suspect]
     Indication: ISCHAEMIA
     Dosage: 70 MG, SINGLE, INTRAVENOUS
     Route: 042
  2. ACE INHIBITOR (ANGIOTENSIN-COVERTING ENZYME INHIBITORS) [Concomitant]

REACTIONS (1)
  - ANAPHYLACTIC SHOCK [None]
